FAERS Safety Report 8569332-X (Version None)
Quarter: 2012Q3

REPORT INFORMATION
  Report Type: 
  Country: None (occurrence: None)
  Receive Date: 20120803
  Receipt Date: 20120228
  Transmission Date: 20120928
  Serious: No
  Sender: FDA-Public Use
  Company Number: US-ABBOTT-12P-163-0909653-00

PATIENT
  Sex: Male
  Weight: 59.02 kg

DRUGS (4)
  1. NIASPAN [Suspect]
     Indication: BLOOD CHOLESTEROL
     Route: 048
     Dates: start: 20120101, end: 20120101
  2. TENEX [Concomitant]
     Indication: BLOOD PRESSURE
  3. PERCOCET [Concomitant]
     Indication: PAIN
  4. XANAX [Concomitant]
     Indication: ANXIETY

REACTIONS (1)
  - ERYTHEMA [None]
